FAERS Safety Report 10414152 (Version 1)
Quarter: 2014Q3

REPORT INFORMATION
  Report Type: Spontaneous
  Country: US (occurrence: US)
  Receive Date: 20140827
  Receipt Date: 20140827
  Transmission Date: 20150326
  Serious: No
  Sender: FDA-Public Use
  Company Number: US-009507513-1408USA012994

PATIENT
  Sex: Female

DRUGS (1)
  1. JANUVIA [Suspect]
     Active Substance: SITAGLIPTIN PHOSPHATE
     Indication: DIABETES MELLITUS
     Dosage: 25 MG, UNK
     Route: 048
     Dates: start: 2011, end: 201401

REACTIONS (2)
  - Blood glucose increased [Recovered/Resolved]
  - Glycosylated haemoglobin decreased [Recovered/Resolved]

NARRATIVE: CASE EVENT DATE: 2014
